FAERS Safety Report 23463014 (Version 2)
Quarter: 2024Q1

REPORT INFORMATION
  Report Type: Report from Study
  Country: CA (occurrence: CA)
  Receive Date: 20240131
  Receipt Date: 20240216
  Transmission Date: 20240409
  Serious: Yes (Hospitalization)
  Sender: FDA-Public Use
  Company Number: CA-BAUSCH-BL-2023-002499

PATIENT
  Age: 59 Year
  Sex: Male

DRUGS (5)
  1. SILIQ [Suspect]
     Active Substance: BRODALUMAB
     Indication: Psoriasis
     Dosage: 210 MG /1.5 ML, WEEKLY, WEEK 0, 1 AND 2
     Route: 058
     Dates: start: 20221229, end: 20230112
  2. SILIQ [Suspect]
     Active Substance: BRODALUMAB
     Dosage: 210 MG / 1.5 ML,  Q 2 WEEKS
     Route: 058
     Dates: start: 20230126
  3. SILIQ [Suspect]
     Active Substance: BRODALUMAB
     Dosage: 210 MG / 1.5 ML,  Q 2 WEEKS
     Route: 058
     Dates: start: 202311
  4. SILIQ [Suspect]
     Active Substance: BRODALUMAB
     Dosage: 210 MG / 1.5 ML,  Q 2 WEEKS
     Route: 058
     Dates: start: 20240111
  5. SILIQ [Suspect]
     Active Substance: BRODALUMAB
     Dosage: 210 MG / 1.5 ML,  Q 2 WEEKS
     Route: 058
     Dates: start: 20240125

REACTIONS (6)
  - Abdominal pain [Recovered/Resolved]
  - Illness [Unknown]
  - Headache [Recovered/Resolved]
  - Influenza like illness [Recovering/Resolving]
  - Influenza [Recovering/Resolving]
  - Intentional dose omission [Unknown]

NARRATIVE: CASE EVENT DATE: 20230101
